FAERS Safety Report 6680204-8 (Version None)
Quarter: 2010Q2

REPORT INFORMATION
  Report Type: 
  Country: None (occurrence: None)
  Receive Date: 20100413
  Receipt Date: 20100403
  Transmission Date: 20101027
  Serious: No
  Sender: FDA-Public Use
  Company Number: BR-ROCHE-695382

PATIENT
  Sex: Female

DRUGS (2)
  1. ROACUTAN [Suspect]
     Indication: ACNE
     Dates: start: 20020101, end: 20020101
  2. YASMIN [Concomitant]

REACTIONS (2)
  - LIVE BIRTH [None]
  - NO ADVERSE EVENT [None]
